FAERS Safety Report 8937135 (Version 1)
Quarter: 2012Q4

REPORT INFORMATION
  Report Type: Spontaneous
  Country: GB (occurrence: None)
  Receive Date: 20121123
  Receipt Date: 20121123
  Transmission Date: 20130627
  Serious: Yes (Other)
  Sender: FDA-Public Use
  Company Number: 2012-01679

PATIENT
  Sex: Female

DRUGS (1)
  1. SIMVASTATIN [Suspect]
     Indication: PRECAUTIONARY MEASURE

REACTIONS (6)
  - Diverticulitis intestinal haemorrhagic [None]
  - Weight decreased [None]
  - Muscle atrophy [None]
  - Gait disturbance [None]
  - Anaemia [None]
  - Urinary tract infection [None]
